FAERS Safety Report 9426104 (Version 1)
Quarter: 2013Q3

REPORT INFORMATION
  Report Type: Spontaneous
  Country: US (occurrence: US)
  Receive Date: 20130730
  Receipt Date: 20130730
  Transmission Date: 20140515
  Serious: No
  Sender: FDA-Public Use
  Company Number: US-BIOGENIDEC-2013BI066358

PATIENT
  Sex: Male

DRUGS (2)
  1. AVONEX [Suspect]
     Indication: MULTIPLE SCLEROSIS
     Route: 030
     Dates: start: 20020523
  2. AVONEX [Suspect]
     Indication: MULTIPLE SCLEROSIS
     Route: 030

REACTIONS (8)
  - Listless [Unknown]
  - Nervousness [Unknown]
  - Stress [Unknown]
  - Asthenia [Recovered/Resolved]
  - Influenza like illness [Recovered/Resolved]
  - Pain [Recovered/Resolved]
  - Pain in extremity [Recovered/Resolved]
  - Injection site pain [Unknown]
